FAERS Safety Report 11129672 (Version 2)
Quarter: 2015Q2

REPORT INFORMATION
  Report Type: Spontaneous
  Country: US (occurrence: US)
  Receive Date: 20150521
  Receipt Date: 20150615
  Transmission Date: 20150821
  Serious: Yes (Hospitalization)
  Sender: FDA-Public Use
  Company Number: US-JNJFOC-20150513568

PATIENT
  Age: 75 Year
  Sex: Male

DRUGS (22)
  1. MUCINEX [Concomitant]
     Active Substance: GUAIFENESIN
  2. TYLENOL [Concomitant]
     Active Substance: ACETAMINOPHEN
  3. OSTEO BI-FLEX [Concomitant]
     Active Substance: CHONDROITIN SULFATE A\GLUCOSAMINE
     Dosage: 2 DF, QD
     Route: 048
     Dates: start: 20120710
  4. BENZONATATE. [Concomitant]
     Active Substance: BENZONATATE
     Dosage: TID PRN
  5. SYMBICORT [Concomitant]
     Active Substance: BUDESONIDE\FORMOTEROL FUMARATE DIHYDRATE
     Dosage: 2 DF, BID
     Route: 050
  6. IMBRUVICA [Suspect]
     Active Substance: IBRUTINIB
     Indication: CHRONIC LYMPHOCYTIC LEUKAEMIA
     Route: 048
     Dates: start: 20140820, end: 20150511
  7. MIRTAZAPINE. [Concomitant]
     Active Substance: MIRTAZAPINE
     Dosage: 15MG,QHS
     Route: 048
     Dates: start: 20140813
  8. ASPIRIN. [Concomitant]
     Active Substance: ASPIRIN
  9. VITAMIN D [Concomitant]
     Active Substance: CHOLECALCIFEROL
     Dosage: 2000 UNITS QD
  10. AVASTIN [Concomitant]
     Active Substance: BEVACIZUMAB
     Indication: RETINAL VEIN OCCLUSION
     Dosage: 100 MG/4ML R EYE Q6 WEEKS
     Route: 031
  11. DIAZEPAM. [Concomitant]
     Active Substance: DIAZEPAM
     Dosage: Q AM
     Route: 048
  12. PROMETHAZINE/CODEINE [Concomitant]
     Active Substance: CODEINE\PROMETHAZINE
     Dosage: 5 ML, HS PRN
  13. GAMMAGARD [Concomitant]
     Active Substance: HUMAN IMMUNOGLOBULIN G
     Indication: HYPOGAMMAGLOBULINAEMIA
     Dosage: 5 ML,2X PER WEEK
     Route: 058
     Dates: start: 20130611
  14. MECLIZINE [Concomitant]
     Active Substance: MECLIZINE\MECLIZINE HYDROCHLORIDE
     Dosage: PRN
     Route: 048
     Dates: start: 20141014
  15. SIMBRINZA [Concomitant]
     Active Substance: BRIMONIDINE TARTRATE\BRINZOLAMIDE
     Dosage: 1 GTT, OD Q PM
     Route: 047
  16. ATORVASTATIN CALCIUM. [Concomitant]
     Active Substance: ATORVASTATIN CALCIUM
     Route: 048
  17. LUMIGAN [Concomitant]
     Active Substance: BIMATOPROST
     Dosage: 1 GTT,OS Q PM
     Route: 047
  18. LEVOTHYROXINE SODIUM. [Concomitant]
     Active Substance: LEVOTHYROXINE SODIUM
  19. SINGULAIR [Concomitant]
     Active Substance: MONTELUKAST SODIUM
  20. CALCIUM [Concomitant]
     Active Substance: CALCIUM
  21. PROAIR HFA [Concomitant]
     Active Substance: ALBUTEROL SULFATE
     Dosage: 2 DF, Q4-6H PRN
     Route: 050
     Dates: start: 20140909
  22. VITAMIN D3 [Concomitant]
     Active Substance: CHOLECALCIFEROL
     Dosage: 2000 UNITS, QD
     Route: 048

REACTIONS (9)
  - Aphasia [Recovered/Resolved]
  - Meningitis aseptic [Unknown]
  - Gait disturbance [Not Recovered/Not Resolved]
  - Dyspnoea [Not Recovered/Not Resolved]
  - Encephalopathy [Recovered/Resolved]
  - Atrial fibrillation [Recovered/Resolved]
  - Pulmonary mass [Not Recovered/Not Resolved]
  - Fatigue [Not Recovered/Not Resolved]
  - Subdural haematoma [Unknown]

NARRATIVE: CASE EVENT DATE: 201504
